FAERS Safety Report 10629750 (Version 1)
Quarter: 2014Q4

REPORT INFORMATION
  Report Type: Spontaneous
  Country: US (occurrence: US)
  Receive Date: 20141205
  Receipt Date: 20141205
  Transmission Date: 20150529
  Serious: No
  Sender: FDA-Public Use
  Company Number: US-BRISTOL-MYERS SQUIBB COMPANY-21293543

PATIENT
  Age: 38 Year
  Sex: Female
  Weight: 111.11 kg

DRUGS (1)
  1. METFORMIN HCL [Suspect]
     Active Substance: METFORMIN HYDROCHLORIDE
     Dosage: INITIALLY 5MG THEN 10MG

REACTIONS (1)
  - Drug hypersensitivity [Unknown]
